FAERS Safety Report 7228122-0 (Version None)
Quarter: 2011Q1

REPORT INFORMATION
  Report Type: 
  Country: None (occurrence: None)
  Receive Date: 20110112
  Receipt Date: 20110112
  Transmission Date: 20110831
  Serious: Yes (Other)
  Sender: FDA-Public Use
  Company Number: None

PATIENT
  Age: 59 Year
  Sex: Male
  Weight: 76.2043 kg

DRUGS (4)
  1. OXYCOTIN 80 PURDU [Suspect]
     Indication: BACK DISORDER
     Dosage: 3 A DAY
  2. OXYCOTIN 80 PURDU [Suspect]
     Indication: NEOPLASM MALIGNANT
     Dosage: 3 A DAY
  3. OXYCOTIN 20 PURDU [Suspect]
     Indication: BACK DISORDER
     Dosage: 2 A DAY
  4. OXYCOTIN 20 PURDU [Suspect]
     Indication: NEOPLASM MALIGNANT
     Dosage: 2 A DAY

REACTIONS (5)
  - DRUG EFFECT DECREASED [None]
  - PRODUCT FORMULATION ISSUE [None]
  - GASTRIC DISORDER [None]
  - HEADACHE [None]
  - QUALITY OF LIFE DECREASED [None]
